FAERS Safety Report 16214686 (Version 1)
Quarter: 2019Q2

REPORT INFORMATION
  Report Type: Spontaneous
  Country: US (occurrence: US)
  Receive Date: 20190314
  Receipt Date: 20190314
  Transmission Date: 20190711
  Serious: No
  Sender: FDA-Public Use
  Company Number: None

PATIENT
  Age: 72 Year
  Sex: Male

DRUGS (1)
  1. KISQALI [Suspect]
     Active Substance: RIBOCICLIB
     Indication: BREAST CANCER MALE
     Dosage: ?          OTHER FREQUENCY:DAILY FOR 21 DAYS/MO?
     Route: 048
     Dates: start: 20181201

REACTIONS (4)
  - Pneumonia [None]
  - Skin exfoliation [None]
  - Feeling abnormal [None]
  - Cardiac disorder [None]

NARRATIVE: CASE EVENT DATE: 20190115
